FAERS Safety Report 10037959 (Version 1)
Quarter: 2014Q1

REPORT INFORMATION
  Report Type: Spontaneous
  Country: ES (occurrence: None)
  Receive Date: 20140325
  Receipt Date: 20140325
  Transmission Date: 20141002
  Serious: Yes (Other)
  Sender: FDA-Public Use
  Company Number: None

PATIENT
  Age: 58 Year
  Sex: Male
  Weight: 70 kg

DRUGS (1)
  1. REGORAFENIB [Suspect]
     Indication: COLORECTAL CANCER METASTATIC
     Dosage: 4 PILLS
     Route: 048
     Dates: start: 20140123, end: 20140320

REACTIONS (3)
  - Hyperbilirubinaemia [None]
  - Hypophosphataemia [None]
  - Thyroid function test abnormal [None]
